FAERS Safety Report 6192287-2 (Version None)
Quarter: 2009Q2

REPORT INFORMATION
  Report Type: 
  Country: None (occurrence: None)
  Receive Date: 20090515
  Receipt Date: 20090512
  Transmission Date: 20091009
  Serious: Yes (Hospitalization)
  Sender: FDA-Public Use
  Company Number: JP-ABBOTT-09P-087-0567140-00

PATIENT
  Age: 83 Year
  Sex: Female

DRUGS (8)
  1. VASOLAN [Suspect]
     Indication: ATRIAL FLUTTER
     Route: 048
     Dates: start: 20090312, end: 20090331
  2. DIGOXIN [Concomitant]
     Indication: ARRHYTHMIA
     Route: 048
     Dates: start: 20090312, end: 20090331
  3. BUFFERIN [Concomitant]
     Indication: ANGINA PECTORIS
     Route: 048
  4. FUROSEMIDE [Concomitant]
     Indication: CARDIAC FAILURE CHRONIC
     Route: 048
  5. MAPROTILINE HYDROCHLORIDE [Concomitant]
     Indication: DEPRESSION
     Route: 048
  6. ETHYL LOFLAZEPATE [Concomitant]
     Indication: ANXIETY DISORDER
     Route: 048
  7. KEISHIBUKURYOUGAN [Concomitant]
     Indication: ANXIETY DISORDER
     Route: 048
  8. PURSENNID [Concomitant]
     Indication: CONSTIPATION
     Route: 048

REACTIONS (1)
  - OCULOMUCOCUTANEOUS SYNDROME [None]
